FAERS Safety Report 25445735 (Version 1)
Quarter: 2025Q2

REPORT INFORMATION
  Report Type: Report from Study
  Country: US (occurrence: US)
  Receive Date: 20250617
  Receipt Date: 20250617
  Transmission Date: 20250717
  Serious: Yes (Disabling, Other)
  Sender: ABBVIE
  Company Number: US-ABBVIE-6326067

PATIENT
  Age: 67 Year
  Sex: Male

DRUGS (1)
  1. RINVOQ [Suspect]
     Active Substance: UPADACITINIB
     Indication: Crohn^s disease
     Route: 048
     Dates: start: 20241020

REACTIONS (3)
  - Glaucoma [Recovering/Resolving]
  - Intraocular pressure test abnormal [Unknown]
  - Blindness [Unknown]

NARRATIVE: CASE EVENT DATE: 20250101
